FAERS Safety Report 21024340 (Version 1)
Quarter: 2022Q2

REPORT INFORMATION
  Report Type: Report from Study
  Country: US (occurrence: US)
  Receive Date: 20220629
  Receipt Date: 20220629
  Transmission Date: 20220721
  Serious: Yes (Hospitalization)
  Sender: FDA-Public Use
  Company Number: US-TAKEDA-2022TUS043024

PATIENT
  Age: 7 Year
  Sex: Female
  Weight: 23.2 kg

DRUGS (7)
  1. TEDUGLUTIDE [Suspect]
     Active Substance: TEDUGLUTIDE
     Indication: Short-bowel syndrome
     Route: 042
  2. TEDUGLUTIDE [Suspect]
     Active Substance: TEDUGLUTIDE
     Indication: Short-bowel syndrome
     Route: 042
  3. TEDUGLUTIDE [Suspect]
     Active Substance: TEDUGLUTIDE
     Indication: Short-bowel syndrome
     Route: 042
  4. TEDUGLUTIDE [Suspect]
     Active Substance: TEDUGLUTIDE
     Indication: Short-bowel syndrome
     Route: 042
  5. BUDESONIDE [Concomitant]
     Active Substance: BUDESONIDE
     Indication: Inflammation
     Dosage: 0.5 MILLIGRAM, BID
     Route: 055
     Dates: start: 20200520, end: 20200522
  6. BUDESONIDE [Concomitant]
     Active Substance: BUDESONIDE
     Dosage: 1 MILLIGRAM, BID
     Route: 055
     Dates: start: 20200522, end: 20200526
  7. SULFASALAZINE [Concomitant]
     Active Substance: SULFASALAZINE
     Indication: Product used for unknown indication
     Dosage: 50 MILLIGRAM/KILOGRAM, Q8HR
     Route: 048
     Dates: start: 20200427, end: 20200528

REACTIONS (1)
  - Gastrointestinal bacterial overgrowth [Recovered/Resolved]

NARRATIVE: CASE EVENT DATE: 20200522
